FAERS Safety Report 4570095-3 (Version None)
Quarter: 2005Q1

REPORT INFORMATION
  Report Type: 
  Country: None (occurrence: None)
  Receive Date: 20050125
  Receipt Date: 20050125
  Transmission Date: 20050727
  Serious: No
  Sender: FDA-Public Use
  Company Number: None

PATIENT
  Age: 52 Year
  Sex: Female

DRUGS (3)
  1. PAROXETINE 30 MG [Suspect]
     Indication: ANXIETY
     Dosage: 30 MG PO
     Route: 048
  2. PAROXETINE 30 MG [Suspect]
     Indication: PANIC DISORDER
     Dosage: 30 MG PO
     Route: 048
  3. HYDROCODONE [Concomitant]

REACTIONS (4)
  - ABDOMINAL DISCOMFORT [None]
  - AGITATION [None]
  - DRUG EFFECT DECREASED [None]
  - PHARMACEUTICAL PRODUCT COMPLAINT [None]
